FAERS Safety Report 13871784 (Version 1)
Quarter: 2017Q3

REPORT INFORMATION
  Report Type: Spontaneous
  Country: NL (occurrence: NL)
  Receive Date: 20170816
  Receipt Date: 20170816
  Transmission Date: 20171127
  Serious: Yes (Hospitalization, Other)
  Sender: FDA-Public Use
  Company Number: NL-PFIZER INC-2017326673

PATIENT
  Age: 71 Year
  Sex: Male

DRUGS (10)
  1. AMIODARONE HCL [Suspect]
     Active Substance: AMIODARONE HYDROCHLORIDE
     Indication: CARDIAC FAILURE
     Dosage: 200 MG, 1X/DAY
     Route: 048
     Dates: start: 20130418, end: 20170617
  2. CALCIUM CARBONATE/COLECALCIFEROL [Concomitant]
     Dosage: UNK
  3. LISINOPRIL. [Concomitant]
     Active Substance: LISINOPRIL
     Dosage: UNK
  4. COTRIMOXAZOL CF [Concomitant]
     Dosage: UNK
  5. PANTOPRAZOL TEVA [Concomitant]
     Active Substance: PANTOPRAZOLE SODIUM
     Dosage: UNK
  6. FOLIUMZUUR TEVA [Concomitant]
     Dosage: UNK
  7. YELLOX OOGDRUPPELS [Concomitant]
     Dosage: UNK
  8. NATRIUMRISEDRONAAT SANDOZ WEKELIJKS [Concomitant]
     Dosage: UNK
  9. ACENOCOUMAROL [Concomitant]
     Active Substance: ACENOCOUMAROL
     Dosage: UNK
  10. PARACETAMOL [Concomitant]
     Active Substance: ACETAMINOPHEN
     Dosage: UNK

REACTIONS (6)
  - Interstitial lung disease [Recovering/Resolving]
  - Syncope [Unknown]
  - Hypotension [Recovering/Resolving]
  - Folate deficiency [Unknown]
  - Hyperthyroidism [Unknown]
  - Iron deficiency anaemia [Unknown]

NARRATIVE: CASE EVENT DATE: 20170616
